FAERS Safety Report 7877013-0 (Version None)
Quarter: 2011Q4

REPORT INFORMATION
  Report Type: 
  Country: None (occurrence: None)
  Receive Date: 20111031
  Receipt Date: 20110826
  Transmission Date: 20120403
  Serious: No
  Sender: FDA-Public Use
  Company Number: US-ABBOTT-11P-163-0849615-00

PATIENT
  Sex: Female
  Weight: 57.204 kg

DRUGS (2)
  1. PEPCID [Concomitant]
     Indication: PRODUCT USED FOR UNKNOWN INDICATION
  2. CREON [Suspect]
     Indication: PRODUCT USED FOR UNKNOWN INDICATION
     Dates: start: 20110715, end: 20110717

REACTIONS (2)
  - CONSTIPATION [None]
  - ABDOMINAL DISTENSION [None]
